FAERS Safety Report 13545874 (Version 1)
Quarter: 2017Q2

REPORT INFORMATION
  Report Type: Spontaneous
  Country: DE (occurrence: DE)
  Receive Date: 20170515
  Receipt Date: 20170515
  Transmission Date: 20170830
  Serious: Yes (Other)
  Sender: FDA-Public Use
  Company Number: DE-BAYER-2017-086022

PATIENT
  Age: 53 Year
  Sex: Female

DRUGS (2)
  1. GADOVIST [Suspect]
     Active Substance: GADOBUTROL
     Indication: NUCLEAR MAGNETIC RESONANCE IMAGING
     Route: 037
  2. GADOVIST [Suspect]
     Active Substance: GADOBUTROL
     Indication: LUMBAR SPINAL STENOSIS

REACTIONS (4)
  - Off label use [None]
  - Pain [Recovering/Resolving]
  - Seizure [Recovering/Resolving]
  - Incorrect route of drug administration [Recovering/Resolving]
